FAERS Safety Report 15884174 (Version 1)
Quarter: 2019Q1

REPORT INFORMATION
  Report Type: Spontaneous
  Country: US (occurrence: US)
  Receive Date: 20190104
  Receipt Date: 20190104
  Transmission Date: 20190417
  Serious: Yes (Hospitalization)
  Sender: FDA-Public Use
  Company Number: None

PATIENT
  Age: 52 Year
  Sex: Male

DRUGS (2)
  1. FLOMAX ZOFRAN [Concomitant]
  2. IMATINIB MES TAB 100MG [Suspect]
     Active Substance: IMATINIB MESYLATE
     Route: 048
     Dates: start: 200901

REACTIONS (3)
  - Vomiting [None]
  - Cellulitis [None]
  - Pneumonia [None]

NARRATIVE: CASE EVENT DATE: 20181227
